FAERS Safety Report 6165410-3 (Version None)
Quarter: 2009Q2

REPORT INFORMATION
  Report Type: 
  Country: None (occurrence: None)
  Receive Date: 20090423
  Receipt Date: 20090421
  Transmission Date: 20091009
  Serious: Yes (Hospitalization, Other)
  Sender: FDA-Public Use
  Company Number: US-BRISTOL-MYERS SQUIBB COMPANY-14581235

PATIENT
  Age: 81 Year
  Sex: Male
  Weight: 100 kg

DRUGS (28)
  1. ERBITUX [Suspect]
     Indication: OESOPHAGEAL ADENOCARCINOMA
     Dosage: STARTED ON 24MAR09;LOADING DOSE 400MG/M2 ON DAY 1; 250MG/M2 ON DAYS 8,15,22,29 AND 36
     Dates: start: 20090331, end: 20090331
  2. CISPLATIN [Suspect]
     Indication: OESOPHAGEAL ADENOCARCINOMA
     Dosage: STARTED ON 24MAR09. 25MG/M2 DAYS 1,8,15,22,29,AND 36
     Dates: start: 20090331, end: 20090331
  3. TAXOL [Suspect]
     Indication: OESOPHAGEAL ADENOCARCINOMA
     Dosage: STARTED ON 24MAR09;50MG/M2 ON DAY 1,8,15,22,29 AND 36
     Dates: start: 20090331, end: 20090331
  4. RADIATION THERAPY [Suspect]
     Indication: OESOPHAGEAL ADENOCARCINOMA
     Dosage: DF=14.4GY(TOT DOSE TILL 02APR09);50.4GY AT180CGY/FX D1-5,8-12,15-19,22-26,29-33+36-38.TDOSE-25.2 GY
     Dates: start: 20090324
  5. ALBUTEROL [Concomitant]
  6. BUDESONIDE [Concomitant]
  7. CEFAZOLIN [Concomitant]
  8. CLINDAMYCIN HCL [Concomitant]
  9. CLONIDINE [Concomitant]
  10. DILTIAZEM HCL [Concomitant]
  11. DOCUSATE SODIUM [Concomitant]
  12. FUROSEMIDE [Concomitant]
  13. LACTULOSE [Concomitant]
  14. MAGNESIUM SULFATE [Concomitant]
  15. DEXTROSE [Concomitant]
  16. MONTELUKAST [Concomitant]
  17. ONDANSETRON HCL [Concomitant]
  18. OXYCODONE HCL [Concomitant]
  19. POTASSIUM CHLORIDE [Concomitant]
  20. POTASSIUM PHOSPHATE+ SODIUM PHOSPHATE [Concomitant]
  21. PROMETHAZINE [Concomitant]
  22. SENNA [Concomitant]
  23. THEOPHYLLINE [Concomitant]
  24. TIOTROPIUM BROMIDE [Concomitant]
  25. TRAZODONE HCL [Concomitant]
  26. VALSARTAN + HCTZ [Concomitant]
  27. VANCOMYCIN HCL [Concomitant]
     Dosage: VANCOMYCIN IN DEXTROSE GIVEN.
  28. ZOLPIDEM TARTRATE [Concomitant]

REACTIONS (3)
  - BACTERAEMIA [None]
  - CELLULITIS [None]
  - HYPONATRAEMIA [None]
